FAERS Safety Report 6561918-7 (Version None)
Quarter: 2010Q1

REPORT INFORMATION
  Report Type: 
  Country: None (occurrence: None)
  Receive Date: 20100130
  Receipt Date: 20091030
  Transmission Date: 20100710
  Serious: No
  Sender: FDA-Public Use
  Company Number: US-ABBOTT-09P-163-0606144-00

PATIENT
  Sex: Female
  Weight: 52.21 kg

DRUGS (1)
  1. HUMIRA [Suspect]
     Indication: RHEUMATOID ARTHRITIS
     Dates: start: 20090626, end: 20091005

REACTIONS (5)
  - EMOTIONAL DISORDER [None]
  - FEELING ABNORMAL [None]
  - ILL-DEFINED DISORDER [None]
  - IRRITABILITY [None]
  - NERVOUSNESS [None]
